FAERS Safety Report 4273836-8 (Version None)
Quarter: 2004Q1

REPORT INFORMATION
  Report Type: 
  Country: None (occurrence: None)
  Receive Date: 20040115
  Receipt Date: 20040106
  Transmission Date: 20041129
  Serious: Yes (Other)
  Sender: FDA-Public Use
  Company Number: US-JNJFOC-20040100769

PATIENT
  Age: 40 Year
  Sex: Female
  Weight: 54 kg

DRUGS (10)
  1. REMICADE [Suspect]
     Indication: CROHN'S DISEASE
     Dosage: 270 MG, INTRAVENOUS
     Route: 042
     Dates: start: 20030714
  2. REMICADE [Suspect]
     Indication: CROHN'S DISEASE
     Dosage: 270 MG, INTRAVENOUS
     Route: 042
     Dates: start: 20030725
  3. REMICADE [Suspect]
     Indication: CROHN'S DISEASE
     Dosage: 270 MG, INTRAVENOUS
     Route: 042
     Dates: start: 20030825
  4. REMICADE [Suspect]
     Indication: CROHN'S DISEASE
     Dosage: 270 MG, INTRAVENOUS
     Route: 042
     Dates: start: 20031020
  5. REMICADE [Suspect]
     Indication: CROHN'S DISEASE
     Dosage: 270 MG, INTRAVENOUS
     Route: 042
     Dates: start: 20031215
  6. ASACOL (TABLETS) MESALAZINE [Concomitant]
  7. CALCIUM CARBONATE  (CALCIUM CARBONATE) [Concomitant]
  8. IRON  (IRON) [Concomitant]
  9. ALLEGRA [Concomitant]
  10. MVI (MULTIVITAMINS) [Concomitant]

REACTIONS (4)
  - ABDOMINAL INFECTION [None]
  - ALANINE AMINOTRANSFERASE INCREASED [None]
  - ASPARTATE AMINOTRANSFERASE INCREASED [None]
  - POSTOPERATIVE INFECTION [None]
